FAERS Safety Report 4386061-7 (Version None)
Quarter: 2004Q2

REPORT INFORMATION
  Report Type: 
  Country: None (occurrence: None)
  Receive Date: 20040607
  Receipt Date: 20031215
  Transmission Date: 20050107
  Serious: Yes (Other)
  Sender: FDA-Public Use
  Company Number: 344394

PATIENT

DRUGS (3)
  1. ACCUTANE [Suspect]
     Indication: ACNE
     Dosage: 60 MG DAILY ORAL
     Route: 048
     Dates: start: 20021203, end: 20030710
  2. PAXIL [Concomitant]
  3. BCP (ORAL CONTRACEPTIVE NOS) [Concomitant]

REACTIONS (2)
  - ADVERSE EVENT [None]
  - PREGNANCY [None]
